FAERS Safety Report 12975253 (Version 1)
Quarter: 2016Q4

REPORT INFORMATION
  Report Type: Spontaneous
  Country: US (occurrence: US)
  Receive Date: 20161123
  Receipt Date: 20161123
  Transmission Date: 20170207
  Serious: Yes (Hospitalization, Disabling)
  Sender: FDA-Public Use
  Company Number: None

PATIENT
  Age: 31 Year
  Sex: Female
  Weight: 58.5 kg

DRUGS (5)
  1. CRANBERRY EXTRACT PROBIOTIC [Concomitant]
  2. BUSPARINE [Concomitant]
  3. CHANTIX [Suspect]
     Active Substance: VARENICLINE TARTRATE
     Indication: SMOKING CESSATION THERAPY
     Route: 048
     Dates: start: 20140520, end: 20140630
  4. EXEDRINE MIGRAINE [Concomitant]
  5. PROTEIN POWDER [Concomitant]

REACTIONS (8)
  - Hallucination [None]
  - Panic attack [None]
  - Cognitive disorder [None]
  - Paranoia [None]
  - Therapy cessation [None]
  - Delusion [None]
  - Mania [None]
  - Bipolar disorder [None]

NARRATIVE: CASE EVENT DATE: 20140630
